FAERS Safety Report 10329847 (Version 1)
Quarter: 2014Q3

REPORT INFORMATION
  Report Type: Spontaneous
  Country: US (occurrence: US)
  Receive Date: 20140721
  Receipt Date: 20140721
  Transmission Date: 20150326
  Serious: Yes (Other)
  Sender: FDA-Public Use
  Company Number: US-TEVA-494852USA

PATIENT
  Age: 54 Year
  Sex: Male

DRUGS (4)
  1. ACTIQ [Suspect]
     Active Substance: FENTANYL CITRATE
     Indication: BACK PAIN
     Dosage: 11200 MICROGRAM DAILY;
     Route: 048
     Dates: start: 201005, end: 20140714
  2. ACTIQ [Suspect]
     Active Substance: FENTANYL CITRATE
     Indication: NECK PAIN
  3. FENTORA [Suspect]
     Active Substance: FENTANYL CITRATE
     Indication: BACK PAIN
     Dosage: 3200 MICROGRAM DAILY;
     Route: 002
     Dates: start: 201205, end: 20140714
  4. FENTORA [Suspect]
     Active Substance: FENTANYL CITRATE
     Indication: NECK PAIN

REACTIONS (3)
  - Intentional product misuse [Unknown]
  - Drug withdrawal syndrome [Unknown]
  - Off label use [Unknown]

NARRATIVE: CASE EVENT DATE: 20140714
